FAERS Safety Report 8502012 (Version 3)
Quarter: 2014Q1

REPORT INFORMATION
  Report Type: Spontaneous
  Country: US (occurrence: US)
  Receive Date: 20120410
  Receipt Date: 20140207
  Transmission Date: 20141002
  Serious: Yes (Hospitalization)
  Sender: FDA-Public Use
  Company Number: US-JNJFOC-20120401170

PATIENT
  Age: 45 Year
  Sex: Male
  Weight: 70.31 kg

DRUGS (19)
  1. DURAGESIC [Suspect]
     Indication: BACK PAIN
     Route: 062
     Dates: start: 20111101
  2. DURAGESIC [Suspect]
     Indication: BACK PAIN
     Route: 062
     Dates: start: 20120314, end: 20120401
  3. DURAGESIC [Suspect]
     Indication: BACK PAIN
     Route: 062
     Dates: start: 201202
  4. DURAGESIC [Suspect]
     Indication: NECK PAIN
     Route: 062
     Dates: start: 20111101
  5. DURAGESIC [Suspect]
     Indication: NECK PAIN
     Route: 062
     Dates: start: 20120314, end: 20120401
  6. DURAGESIC [Suspect]
     Indication: NECK PAIN
     Route: 062
     Dates: start: 201202
  7. DURAGESIC [Suspect]
     Indication: PAIN
     Route: 062
     Dates: start: 20111101
  8. DURAGESIC [Suspect]
     Indication: PAIN
     Route: 062
     Dates: start: 201202
  9. DURAGESIC [Suspect]
     Indication: PAIN
     Route: 062
     Dates: start: 20120314, end: 20120401
  10. FENTANYL TRANSDERMAL SYSTEM [Suspect]
     Indication: PRODUCT USED FOR UNKNOWN INDICATION
     Route: 062
  11. OXYCODONE [Concomitant]
     Indication: PAIN
     Route: 048
  12. LITHIUM [Concomitant]
     Indication: BIPOLAR DISORDER
     Route: 048
  13. LITHIUM [Concomitant]
     Indication: ATTENTION DEFICIT/HYPERACTIVITY DISORDER
     Route: 048
  14. VALIUM [Concomitant]
     Indication: BIPOLAR DISORDER
     Route: 048
  15. VALIUM [Concomitant]
     Indication: ATTENTION DEFICIT/HYPERACTIVITY DISORDER
     Route: 048
  16. ZANTAC [Concomitant]
     Indication: DYSPEPSIA
     Route: 048
  17. LYRICA [Concomitant]
     Indication: NERVOUS SYSTEM DISORDER
     Route: 048
  18. OXYCONTIN [Concomitant]
     Route: 048
  19. CYCLOBENZAPRINE [Concomitant]
     Indication: MUSCLE RELAXANT THERAPY
     Route: 048

REACTIONS (12)
  - Surgery [Unknown]
  - Product quality issue [Unknown]
  - Withdrawal syndrome [Not Recovered/Not Resolved]
  - Drug effect decreased [Unknown]
  - Product quality issue [Unknown]
  - Wrong technique in drug usage process [Recovered/Resolved]
  - Drug administered at inappropriate site [Recovered/Resolved]
  - Wrong technique in drug usage process [Recovered/Resolved]
  - Product quality issue [Unknown]
  - Drug effect decreased [Not Recovered/Not Resolved]
  - Product quality issue [Unknown]
  - Wrong technique in drug usage process [Recovered/Resolved]
